FAERS Safety Report 11074041 (Version 2)
Quarter: 2015Q3

REPORT INFORMATION
  Report Type: Spontaneous
  Country: DE (occurrence: DE)
  Receive Date: 20150429
  Receipt Date: 20150915
  Transmission Date: 20151125
  Serious: Yes (Hospitalization, Other)
  Sender: FDA-Public Use
  Company Number: DE-ROCHE-1569907

PATIENT
  Sex: Female
  Weight: 65 kg

DRUGS (6)
  1. TORASEMID [Concomitant]
     Active Substance: TORSEMIDE
     Route: 048
  2. IBUPROFEN. [Concomitant]
     Active Substance: IBUPROFEN
     Route: 048
  3. PANTOPRAZOLE SODIUM. [Concomitant]
     Active Substance: PANTOPRAZOLE SODIUM
     Route: 048
  4. MARCUMAR [Concomitant]
     Active Substance: PHENPROCOUMON
  5. ROACTEMRA [Suspect]
     Active Substance: TOCILIZUMAB
     Indication: RHEUMATOID ARTHRITIS
     Route: 042
  6. RAMIPRIL. [Concomitant]
     Active Substance: RAMIPRIL
     Route: 048

REACTIONS (10)
  - Thrombocytopenia [Recovered/Resolved]
  - Aortic valve stenosis [Recovered/Resolved]
  - Sinus node dysfunction [Unknown]
  - Chest pain [Unknown]
  - Pleural effusion [Unknown]
  - Atelectasis [Unknown]
  - Arrhythmia [Recovered/Resolved]
  - Tachycardia [Unknown]
  - Pericardial effusion [Unknown]
  - Dyspnoea [Unknown]
